FAERS Safety Report 18114780 (Version 18)
Quarter: 2025Q1

REPORT INFORMATION
  Report Type: Spontaneous
  Country: US (occurrence: US)
  Receive Date: 20200805
  Receipt Date: 20250220
  Transmission Date: 20250409
  Serious: No
  Sender: PFIZER
  Company Number: US-PFIZER INC-2020296161

PATIENT
  Age: 49 Year
  Sex: Female

DRUGS (12)
  1. MEKTOVI [Suspect]
     Active Substance: BINIMETINIB
     Indication: Astrocytoma malignant
     Dosage: 45 MG, 2X/DAY
     Route: 048
  2. MEKTOVI [Suspect]
     Active Substance: BINIMETINIB
     Dates: start: 20230802
  3. MEKTOVI [Suspect]
     Active Substance: BINIMETINIB
     Dosage: 45 MG, 2X/DAY (TAKE 45 MG BID (TWICE A DAY) /TAKE 3 TABS TWICE DAILY)
     Route: 048
  4. MEKTOVI [Suspect]
     Active Substance: BINIMETINIB
     Dosage: 45 MG, 2X/DAY (TAKE 3 X 15 MG TABLETS IN THE MORNING AND 3 X 15 MG TABLETS IN THE EVENING)
     Route: 048
  5. MEKTOVI [Suspect]
     Active Substance: BINIMETINIB
     Dosage: UNK, 2X/DAY (MEKTOVI TABLETS 15 TWICE DAILY)
     Dates: start: 20231231
  6. MEKTOVI [Suspect]
     Active Substance: BINIMETINIB
     Dosage: 45 MG, 2X/DAY
     Route: 048
  7. BRAFTOVI [Suspect]
     Active Substance: ENCORAFENIB
     Indication: Astrocytoma malignant
     Dosage: 450 MG, DAILY (6 CAPSULES BY MOUTH EVERY DAY)
     Route: 048
  8. BRAFTOVI [Suspect]
     Active Substance: ENCORAFENIB
     Dates: start: 20230802
  9. BRAFTOVI [Suspect]
     Active Substance: ENCORAFENIB
     Dosage: 450 MG, 1X/DAY (6 PILLS EVERY MORNING)
     Route: 048
  10. BRAFTOVI [Suspect]
     Active Substance: ENCORAFENIB
     Dosage: 450 MG, 1X/DAY (6 X 75 MG CAPSULES BY MOUTH EVERY DAY)
     Route: 048
  11. BRAFTOVI [Suspect]
     Active Substance: ENCORAFENIB
     Dates: start: 20231231
  12. BRAFTOVI [Suspect]
     Active Substance: ENCORAFENIB
     Dosage: 450 MG, DAILY
     Route: 048

REACTIONS (3)
  - Memory impairment [Unknown]
  - Pruritus [Unknown]
  - Off label use [Unknown]
